FAERS Safety Report 10439680 (Version 1)
Quarter: 2014Q3

REPORT INFORMATION
  Report Type: Spontaneous
  Country: US (occurrence: US)
  Receive Date: 20140908
  Receipt Date: 20140908
  Transmission Date: 20150326
  Serious: Yes (Hospitalization)
  Sender: FDA-Public Use
  Company Number: US-TEVA-506461USA

PATIENT
  Age: 4 Week
  Sex: Female

DRUGS (1)
  1. FLECAINIDE [Suspect]
     Active Substance: FLECAINIDE
     Indication: PRODUCT USED FOR UNKNOWN INDICATION
     Dosage: 5MG/ML; TOTAL DAILY DOSE 10MG/KG/DAY
     Route: 065

REACTIONS (7)
  - Feeding disorder neonatal [Recovering/Resolving]
  - Drug dispensing error [Recovering/Resolving]
  - Incorrect dose administered [Recovering/Resolving]
  - Tachycardia [Recovered/Resolved]
  - Toxicity to various agents [Recovering/Resolving]
  - Insomnia [Recovering/Resolving]
  - Irritability [Recovering/Resolving]
